FAERS Safety Report 6822748-1 (Version None)
Quarter: 2010Q3

REPORT INFORMATION
  Report Type: 
  Country: None (occurrence: None)
  Receive Date: 20100702
  Receipt Date: 20100628
  Transmission Date: 20110219
  Serious: Yes (Hospitalization)
  Sender: FDA-Public Use
  Company Number: TPA2010A03678

PATIENT
  Age: 40 Year
  Sex: Female
  Weight: 130.1823 kg

DRUGS (6)
  1. ACTOS [Suspect]
     Indication: TYPE 2 DIABETES MELLITUS
     Dosage: 15 MG, 3 IN 1 D, PER ORAL; 45 MG, 1 IN 1 D, PER ORAL
     Route: 048
     Dates: start: 20100407
  2. GLIPIZIDE [Concomitant]
  3. METFORMIN HCL [Concomitant]
  4. LISINOPRIL [Concomitant]
  5. SERTRALINE HCL [Concomitant]
  6. ALBUTEROL INHALER (SALBUTAMOL) [Concomitant]

REACTIONS (3)
  - HAEMORRHAGE [None]
  - HERNIA [None]
  - OVERDOSE [None]
